FAERS Safety Report 7588174-5 (Version None)
Quarter: 2011Q3

REPORT INFORMATION
  Report Type: 
  Country: None (occurrence: None)
  Receive Date: 20110705
  Receipt Date: 20110620
  Transmission Date: 20111222
  Serious: Yes (Hospitalization, Other)
  Sender: FDA-Public Use
  Company Number: US-BAYER-201036540NA

PATIENT
  Age: 23 Year
  Sex: Female
  Weight: 61 kg

DRUGS (7)
  1. YASMIN [Suspect]
     Indication: CONTRACEPTION
     Dosage: UNK
     Route: 048
     Dates: start: 20040301
  2. NEXIUM [Concomitant]
  3. YASMIN [Suspect]
     Dosage: UNK
     Dates: start: 20040813, end: 20060106
  4. ORTHO TRI-CYCLEN LO [Concomitant]
     Dosage: UNK
     Dates: start: 20060301, end: 20060501
  5. YAZ [Suspect]
     Dosage: UNK
     Dates: start: 20071001, end: 20080801
  6. YASMIN [Suspect]
     Dosage: UNK
     Dates: start: 20040601, end: 20060101
  7. PHENERGAN HCL [Concomitant]

REACTIONS (4)
  - CHOLECYSTITIS CHRONIC [None]
  - CHOLECYSTITIS [None]
  - MUCOSAL EROSION [None]
  - CHOLELITHIASIS [None]
